FAERS Safety Report 15792423 (Version 4)
Quarter: 2021Q1

REPORT INFORMATION
  Report Type: Spontaneous
  Country: GB (occurrence: GB)
  Receive Date: 20190107
  Receipt Date: 20210315
  Transmission Date: 20210419
  Serious: Yes (Hospitalization, Other)
  Sender: FDA-Public Use
  Company Number: GB-BRISTOL-MYERS SQUIBB COMPANY-BMS-2018-123632

PATIENT
  Age: 53 Year
  Sex: Female

DRUGS (4)
  1. COBICISTAT;DARUNAVIR [Suspect]
     Active Substance: COBICISTAT\DARUNAVIR ETHANOLATE
     Indication: HIV INFECTION
     Dosage: UNK
     Route: 065
  2. DOLUTEGRAVIR [Concomitant]
     Active Substance: DOLUTEGRAVIR
     Indication: HIV INFECTION
     Dosage: UNK
     Route: 065
  3. TRIAMCINOLONE ACETONIDE. [Suspect]
     Active Substance: TRIAMCINOLONE ACETONIDE
     Indication: BURSITIS
     Dosage: 40 MG, TOTAL
  4. BUPIVACAINE. [Suspect]
     Active Substance: BUPIVACAINE
     Indication: BURSITIS
     Dosage: 5 ML, TOTAL
     Route: 042

REACTIONS (5)
  - Drug clearance decreased [Recovered/Resolved]
  - Adrenal insufficiency [Recovered/Resolved]
  - Hypovolaemia [Recovered/Resolved]
  - Urine output decreased [Recovered/Resolved]
  - Cushing^s syndrome [Recovered/Resolved]
